FAERS Safety Report 8415953-4 (Version None)
Quarter: 2012Q2

REPORT INFORMATION
  Report Type: 
  Country: None (occurrence: None)
  Receive Date: 20120606
  Receipt Date: 20120528
  Transmission Date: 20120825
  Serious: Yes (Hospitalization)
  Sender: FDA-Public Use
  Company Number: CA-EISAI INC-E7389-02386-CLI-CA

PATIENT
  Sex: Female
  Weight: 74 kg

DRUGS (8)
  1. NAPROXEN [Concomitant]
     Indication: BACK PAIN
     Route: 065
  2. ACETAMINOPHEN [Concomitant]
     Indication: BACK PAIN
  3. ONDANSETRON [Concomitant]
     Route: 065
  4. EPIRUBICIN HYDROCHLORIDE [Suspect]
     Route: 041
     Dates: start: 20120413
  5. GABAPENTIN [Concomitant]
     Route: 065
  6. ACETAMINOPHEN [Concomitant]
     Route: 065
  7. DECADRON [Concomitant]
     Indication: EYE PAIN
     Route: 065
  8. ZOMETA [Concomitant]
     Route: 065

REACTIONS (1)
  - SEPSIS [None]
